FAERS Safety Report 12329431 (Version 1)
Quarter: 2016Q2

REPORT INFORMATION
  Report Type: Spontaneous
  Country: US (occurrence: US)
  Receive Date: 20160503
  Receipt Date: 20160503
  Transmission Date: 20160815
  Serious: No
  Sender: FDA-Public Use
  Company Number: ALCN2016US002978

PATIENT
  Sex: Female

DRUGS (3)
  1. GENTEAL MODERATE TO SEVERE GEL DROPS [Suspect]
     Active Substance: CARBOXYMETHYLCELLULOSE SODIUM\HYPROMELLOSES
     Indication: DRY EYE
     Dosage: 1 GTT, QHS
     Route: 047
     Dates: start: 201604
  2. REFRESH CELLUVISC [Concomitant]
     Active Substance: CARBOXYMETHYLCELLULOSE SODIUM
     Indication: DRY EYE
     Dosage: UNK
     Route: 047
  3. FRESH KOTE [Concomitant]
     Indication: DRY EYE
     Dosage: UNK UNK, QHS
     Route: 047

REACTIONS (2)
  - Medication residue present [Unknown]
  - Eye irritation [Unknown]

NARRATIVE: CASE EVENT DATE: 201604
